FAERS Safety Report 5474192-X (Version None)
Quarter: 2007Q3

REPORT INFORMATION
  Report Type: 
  Country: None (occurrence: None)
  Receive Date: 20070928
  Receipt Date: 20070928
  Transmission Date: 20080115
  Serious: Yes (Other)
  Sender: FDA-Public Use
  Company Number: None

PATIENT
  Age: 29 Year
  Sex: Female

DRUGS (6)
  1. CYMBALTA [Suspect]
     Dosage: 60 MG/DAY
     Dates: start: 20060414, end: 20060514
  2. OXYCODONE HCL [Concomitant]
  3. OXYCONTIN [Concomitant]
  4. MOTRIN [Concomitant]
  5. LOESTRIN [Concomitant]
  6. TESTOSTERONE [Concomitant]

REACTIONS (10)
  - HEPATITIS ACUTE [None]
  - HEPATOCELLULAR DAMAGE [None]
  - HEPATOTOXICITY [None]
  - INTERNATIONAL NORMALISED RATIO INCREASED [None]
  - LIVER INJURY [None]
  - METABOLIC ACIDOSIS [None]
  - OVERDOSE [None]
  - RENAL DISORDER [None]
  - RENAL FAILURE [None]
  - URINARY TRACT INFECTION [None]
